FAERS Safety Report 4548658-0 (Version None)
Quarter: 2004Q4

REPORT INFORMATION
  Report Type: 
  Country: None (occurrence: None)
  Receive Date: 20041227
  Receipt Date: 20040914
  Transmission Date: 20050328
  Serious: No
  Sender: FDA-Public Use
  Company Number: 04P-163-0273195-00

PATIENT
  Age: 53 Year
  Sex: Male

DRUGS (12)
  1. HUMIRA [Suspect]
     Indication: PSORIATIC ARTHROPATHY
     Dosage: 40 MG, 1 IN 1 WK, SUBCUTANEOUS
     Route: 058
     Dates: start: 20030801
  2. METHOTREXATE [Concomitant]
  3. CARVEDILOL [Concomitant]
  4. ZOCOR [Concomitant]
  5. LISINOPRIL [Concomitant]
  6. CITALOPRAM HYDROCHLORIDE [Concomitant]
  7. FOLIC ACID [Concomitant]
  8. FUROSEMIDE [Concomitant]
  9. ZOLPIDEM TARTRATE [Concomitant]
  10. NITROGLYCERIN [Concomitant]
  11. ACETYLSALICYLIC ACID SRT [Concomitant]
  12. FENOFIBRATE [Concomitant]

REACTIONS (3)
  - ARTHRALGIA [None]
  - CONDITION AGGRAVATED [None]
  - JOINT SWELLING [None]
